FAERS Safety Report 12569177 (Version 1)
Quarter: 2016Q3

REPORT INFORMATION
  Report Type: Spontaneous
  Country: ES (occurrence: ES)
  Receive Date: 20160719
  Receipt Date: 20160719
  Transmission Date: 20161109
  Serious: Yes (Other)
  Sender: FDA-Public Use
  Company Number: ES-JNJFOC-20160711455

PATIENT
  Age: 80 Year
  Sex: Female

DRUGS (1)
  1. REMICADE [Suspect]
     Active Substance: INFLIXIMAB
     Indication: RHEUMATOID ARTHRITIS
     Route: 042
     Dates: start: 201508

REACTIONS (3)
  - Infusion related reaction [Unknown]
  - Pulmonary arterial hypertension [Unknown]
  - Right ventricular failure [Unknown]

NARRATIVE: CASE EVENT DATE: 2016
